FAERS Safety Report 9605755 (Version 5)
Quarter: 2014Q2

REPORT INFORMATION
  Report Type: Spontaneous
  Country: US (occurrence: US)
  Receive Date: 20131008
  Receipt Date: 20140613
  Transmission Date: 20141212
  Serious: Yes (Life-Threatening, Hospitalization, Other)
  Sender: FDA-Public Use
  Company Number: US-009507513-1310USA003684

PATIENT
  Sex: Male
  Weight: 104.7 kg

DRUGS (6)
  1. JANUMET [Suspect]
     Indication: TYPE 2 DIABETES MELLITUS
     Dosage: 50/100 MG, BID
     Route: 048
     Dates: start: 20110217, end: 20110728
  2. JANUMET [Suspect]
     Dosage: 50/500MG, BID
     Route: 048
     Dates: start: 20110207
  3. JANUMET [Suspect]
     Dosage: 50/1000MG, BID
     Route: 048
     Dates: start: 20110222, end: 20110728
  4. BYETTA [Suspect]
     Dosage: 10 MICROGRAM, BID
     Dates: start: 20061229, end: 20080827
  5. ALTACE [Concomitant]
     Dosage: 10 MG, QD
  6. INSULIN [Concomitant]
     Indication: TYPE 2 DIABETES MELLITUS

REACTIONS (27)
  - Pancreatic carcinoma [Unknown]
  - Pancreaticoduodenectomy [Unknown]
  - Hip arthroplasty [Unknown]
  - Liver disorder [Unknown]
  - Malnutrition [Unknown]
  - Hyponatraemia [Unknown]
  - Diabetes mellitus inadequate control [Unknown]
  - Hyperglycaemic hyperosmolar nonketotic syndrome [Unknown]
  - Hepatitis [Unknown]
  - Insulin-requiring type 2 diabetes mellitus [Unknown]
  - Abdominal pain [Unknown]
  - Radiotherapy [Unknown]
  - Bile duct stent insertion [Unknown]
  - Post procedural infection [Unknown]
  - Postoperative hernia [Unknown]
  - Hepatic steatosis [Unknown]
  - Osteoarthritis [Unknown]
  - Erythema [Unknown]
  - Carcinoembryonic antigen increased [Recovering/Resolving]
  - Localised intraabdominal fluid collection [Recovered/Resolved]
  - Pancreatic insufficiency [Unknown]
  - Pyrexia [Unknown]
  - Positron emission tomogram abnormal [Unknown]
  - Haemorrhoids [Unknown]
  - Arteriosclerosis coronary artery [Unknown]
  - Upper respiratory tract infection [Unknown]
  - Drug ineffective [Unknown]
